FAERS Safety Report 5357648-X (Version None)
Quarter: 2007Q2

REPORT INFORMATION
  Report Type: 
  Country: None (occurrence: None)
  Receive Date: 20070614
  Receipt Date: 20070601
  Transmission Date: 20071010
  Serious: Yes (Other)
  Sender: FDA-Public Use
  Company Number: US-SHR-US-2007-006373

PATIENT
  Age: 55 Year
  Sex: Female
  Weight: 60 kg

DRUGS (20)
  1. MAGNEVIST [Suspect]
     Indication: NUCLEAR MAGNETIC RESONANCE IMAGING
     Dosage: 20 ML, 1 DOSE
     Route: 042
     Dates: start: 19930314, end: 19930314
  2. MAGNEVIST [Suspect]
     Dosage: 20 ML, 1 DOSE
     Dates: start: 19990416, end: 19990416
  3. MAGNEVIST [Suspect]
     Dosage: 60 ML, 1 DOSE
     Route: 042
     Dates: start: 20020524, end: 20020524
  4. MAGNEVIST [Suspect]
     Dosage: 60 ML, 1 DOSE
     Route: 042
     Dates: start: 20050313, end: 20050313
  5. MAGNEVIST [Suspect]
     Dosage: 20 ML, 1 DOSE
     Route: 042
     Dates: start: 20060216, end: 20060216
  6. PREDNISONE TAB [Concomitant]
     Dosage: 5 MG, 1X/DAY
     Route: 048
  7. PRILOSEC [Concomitant]
  8. ATENOLOL [Concomitant]
  9. PROPULSID [Concomitant]
     Dosage: 10 MG, 1X/DAY
  10. PHOSLO [Concomitant]
     Dosage: 667 MG, 3X/DAY
     Route: 048
     Dates: start: 20050424, end: 20070308
  11. NORVASC [Concomitant]
     Dosage: 5 MG, 2X/DAY
     Route: 048
     Dates: start: 20070308
  12. HECTOROL [Concomitant]
     Dosage: 3 A?G, 3X/WEEK
     Route: 048
  13. EPOGEN [Concomitant]
     Dates: start: 20050424
  14. FOSRENOL [Concomitant]
     Dosage: 500 MG, 3X/DAY
     Route: 048
     Dates: start: 20070308
  15. NEPHROCAPS [Concomitant]
     Dosage: 1 CAP(S), 1X/DAY
     Route: 048
     Dates: start: 20050424
  16. COUMADIN [Concomitant]
     Dosage: 2.5 MG, 1X/DAY
     Route: 048
  17. ARANESP [Concomitant]
     Dosage: 40 A?G, 1X/WEEK
  18. ZEMPLAR [Concomitant]
     Dosage: 5 A?G, UNK
     Route: 042
  19. PROVERA [Concomitant]
     Dosage: 2.5 MG, 1X/DAY
     Route: 048
  20. ESTRADIOL [Concomitant]
     Dosage: 1 MG, 1X/DAY
     Route: 048

REACTIONS (1)
  - NEPHROGENIC FIBROSING DERMOPATHY [None]
